FAERS Safety Report 22052411 (Version 3)
Quarter: 2023Q2

REPORT INFORMATION
  Report Type: Spontaneous
  Country: US (occurrence: US)
  Receive Date: 20230302
  Receipt Date: 20230525
  Transmission Date: 20230721
  Serious: Yes (Hospitalization, Other)
  Sender: FDA-Public Use
  Company Number: US-BRISTOL-MYERS SQUIBB COMPANY-2023-028628

PATIENT
  Age: 57 Year
  Sex: Female
  Weight: 98.1 kg

DRUGS (32)
  1. OPDIVO [Suspect]
     Active Substance: NIVOLUMAB
     Indication: Malignant melanoma
     Dosage: FREQ: EVERY 2 WEEKS
  2. OPDIVO [Suspect]
     Active Substance: NIVOLUMAB
     Dosage: FREQ: ONCE EVERY 3 WEEKS FOR 4 CYCLES
     Dates: start: 20220623
  3. OPDIVO [Suspect]
     Active Substance: NIVOLUMAB
     Route: 042
     Dates: start: 20220628
  4. OPDIVO [Suspect]
     Active Substance: NIVOLUMAB
     Dosage: CYCLE 4
     Dates: start: 20220929
  5. OPDIVO [Suspect]
     Active Substance: NIVOLUMAB
     Dosage: CYCLE 5
     Dates: start: 20221020
  6. OPDIVO [Suspect]
     Active Substance: NIVOLUMAB
     Dates: start: 20220901
  7. YERVOY [Suspect]
     Active Substance: IPILIMUMAB
     Indication: Malignant melanoma
  8. YERVOY [Suspect]
     Active Substance: IPILIMUMAB
     Dosage: FREQ: ONCE EVERY 3 WEEKS FOR 4 CYCLE
     Dates: start: 20220623
  9. YERVOY [Suspect]
     Active Substance: IPILIMUMAB
     Dosage: CYCLE 5
     Dates: start: 20221020
  10. YERVOY [Suspect]
     Active Substance: IPILIMUMAB
     Dosage: CYCLE 4
     Dates: start: 20220929
  11. PREDNISONE [Suspect]
     Active Substance: PREDNISONE
     Indication: Product used for unknown indication
  12. PREDNISONE [Suspect]
     Active Substance: PREDNISONE
  13. PREDNISONE [Suspect]
     Active Substance: PREDNISONE
     Dates: start: 20230104
  14. SPIRONOLACTONE [Suspect]
     Active Substance: SPIRONOLACTONE
     Indication: Product used for unknown indication
     Route: 048
     Dates: start: 20230213
  15. METOPROLOL [Suspect]
     Active Substance: METOPROLOL
     Indication: Atrial fibrillation
  16. SULFAMETHOXAZOLE\TRIMETHOPRIM [Concomitant]
     Active Substance: SULFAMETHOXAZOLE\TRIMETHOPRIM
     Indication: Product used for unknown indication
     Dosage: 800-160 MG/1 EVERY MONTH, TUESDAY AND THURSADY
     Route: 048
  17. METOPROLOL SUCCINATE [Concomitant]
     Active Substance: METOPROLOL SUCCINATE
     Indication: Product used for unknown indication
     Route: 048
  18. BUSPIRONE [Concomitant]
     Active Substance: BUSPIRONE HYDROCHLORIDE
     Indication: Product used for unknown indication
     Dosage: AS NEEDED
     Route: 048
  19. CYCLOBENZAPRINE [Concomitant]
     Active Substance: CYCLOBENZAPRINE
     Indication: Product used for unknown indication
     Route: 048
  20. DULOXETINE [Concomitant]
     Active Substance: DULOXETINE
     Indication: Product used for unknown indication
     Route: 048
  21. EUTHYROX [Concomitant]
     Active Substance: LEVOTHYROXINE SODIUM
     Indication: Product used for unknown indication
  22. GABAPENTIN [Concomitant]
     Active Substance: GABAPENTIN
     Indication: Product used for unknown indication
     Route: 048
  23. TRAZODONE [Concomitant]
     Active Substance: TRAZODONE HYDROCHLORIDE
     Indication: Product used for unknown indication
     Route: 048
  24. ZOLPIDEM [Concomitant]
     Active Substance: ZOLPIDEM TARTRATE
     Indication: Product used for unknown indication
     Dosage: NIGHTLY AS NEEDED
     Route: 048
  25. LOPERAMIDE [Concomitant]
     Active Substance: LOPERAMIDE
     Indication: Product used for unknown indication
  26. MEDROL [Concomitant]
     Active Substance: METHYLPREDNISOLONE
     Indication: Product used for unknown indication
  27. POTASSIUM CHLORIDE [Concomitant]
     Active Substance: POTASSIUM CHLORIDE
     Indication: Product used for unknown indication
     Dosage: ER
  28. RETINOL [Concomitant]
     Active Substance: RETINOL
     Indication: Product used for unknown indication
     Route: 061
  29. VITAMIN D NOS [Concomitant]
     Active Substance: VITAMIN D NOS
     Indication: Product used for unknown indication
     Route: 061
  30. ZITHROMAX [Concomitant]
     Active Substance: AZITHROMYCIN DIHYDRATE
     Indication: Product used for unknown indication
  31. UNSPECIFIED INGREDIENT [Concomitant]
     Active Substance: UNSPECIFIED INGREDIENT
     Indication: Product used for unknown indication
  32. OMEPRAZOLE [Concomitant]
     Active Substance: OMEPRAZOLE
     Indication: Product used for unknown indication
     Route: 048

REACTIONS (22)
  - Immune-mediated enterocolitis [Recovering/Resolving]
  - Intentional product use issue [Unknown]
  - Fatigue [Unknown]
  - Pyrexia [Recovering/Resolving]
  - Optic neuritis [Unknown]
  - Decreased appetite [Unknown]
  - Headache [Unknown]
  - Tachycardia [Recovering/Resolving]
  - Hypotension [Recovering/Resolving]
  - Fall [Unknown]
  - Muscular weakness [Unknown]
  - Hypothyroidism [Unknown]
  - Upper respiratory tract infection [Recovering/Resolving]
  - Blood corticotrophin decreased [Unknown]
  - Musculoskeletal pain [Recovering/Resolving]
  - Acute kidney injury [Recovered/Resolved]
  - Immune-mediated lung disease [Recovering/Resolving]
  - Fibrin D dimer increased [Unknown]
  - Hypoxia [Recovered/Resolved]
  - Atrial fibrillation [Recovering/Resolving]
  - Encephalopathy [Recovering/Resolving]
  - Vomiting [Recovering/Resolving]

NARRATIVE: CASE EVENT DATE: 20220101
